FAERS Safety Report 7280797-6 (Version None)
Quarter: 2011Q1

REPORT INFORMATION
  Report Type: 
  Country: None (occurrence: None)
  Receive Date: 20110125
  Receipt Date: 20110110
  Transmission Date: 20110831
  Serious: No
  Sender: FDA-Public Use
  Company Number: 2011010014

PATIENT
  Age: 66 Year
  Sex: Male

DRUGS (9)
  1. FLOMAX [Concomitant]
  2. TARCEVA [Concomitant]
  3. FENTORA [Concomitant]
  4. DICYCLOMINE [Concomitant]
  5. FENTANYL [Concomitant]
  6. ONSOLIS [Suspect]
     Indication: CANCER PAIN
     Dosage: SEE IMAGE
     Route: 002
     Dates: start: 20100310
  7. ONSOLIS [Suspect]
     Indication: CANCER PAIN
     Dosage: SEE IMAGE
     Route: 002
     Dates: start: 20091218, end: 20100208
  8. ONSOLIS [Suspect]
     Indication: CANCER PAIN
     Dosage: SEE IMAGE
     Route: 002
     Dates: start: 20100208, end: 20100310
  9. ONDANSETRON [Concomitant]

REACTIONS (2)
  - TREATMENT NONCOMPLIANCE [None]
  - INCORRECT DOSE ADMINISTERED [None]
